FAERS Safety Report 10674998 (Version 2)
Quarter: 2015Q2

REPORT INFORMATION
  Report Type: Spontaneous
  Country: US (occurrence: US)
  Receive Date: 20141224
  Receipt Date: 20150521
  Transmission Date: 20150821
  Serious: Yes (Hospitalization, Other)
  Sender: FDA-Public Use
  Company Number: US-ARIAD PHARMACEUTICALS, INC-2014US004277

PATIENT

DRUGS (1)
  1. ICLUSIG [Suspect]
     Active Substance: PONATINIB
     Indication: CHRONIC MYELOID LEUKAEMIA
     Dosage: 15 MG, QOD
     Route: 048
     Dates: start: 20140207, end: 20150501

REACTIONS (18)
  - Papule [Unknown]
  - Vomiting [Recovered/Resolved]
  - Gastrooesophageal reflux disease [Unknown]
  - Heart rate increased [Unknown]
  - Blood bilirubin increased [Unknown]
  - Diarrhoea [Not Recovered/Not Resolved]
  - Chapped lips [Unknown]
  - Pyrexia [Unknown]
  - Skin hyperpigmentation [Unknown]
  - Amylase increased [Unknown]
  - Headache [Unknown]
  - Skin disorder [Unknown]
  - Dry mouth [Unknown]
  - Decreased appetite [Unknown]
  - Influenza [Unknown]
  - Graft versus host disease in eye [Unknown]
  - Macule [Unknown]
  - Lipase increased [Unknown]
